FAERS Safety Report 24578378 (Version 1)
Quarter: 2024Q4

REPORT INFORMATION
  Report Type: Spontaneous
  Country: GB (occurrence: GB)
  Receive Date: 20241105
  Receipt Date: 20241105
  Transmission Date: 20250115
  Serious: Yes (Other)
  Sender: NOVO NORDISK
  Company Number: None

PATIENT
  Age: 63 Year
  Sex: Female
  Weight: 103 kg

DRUGS (5)
  1. WEGOVY [Suspect]
     Active Substance: SEMAGLUTIDE
     Dosage: 1.00
  2. WEGOVY [Suspect]
     Active Substance: SEMAGLUTIDE
     Indication: Weight control
     Dosage: 0.5
  3. ATENOLOL [Concomitant]
     Active Substance: ATENOLOL
     Indication: Hypertension
     Dosage: UNK
  4. TOLTERODINE [Concomitant]
     Active Substance: TOLTERODINE
     Indication: Bladder irritation
     Dosage: UNK
  5. FLUOXETINE [Concomitant]
     Active Substance: FLUOXETINE HYDROCHLORIDE
     Indication: Adverse drug reaction
     Dosage: UNK

REACTIONS (4)
  - Urinary retention [Recovered/Resolved]
  - Feeding disorder [Recovered/Resolved]
  - Gastrointestinal pain [Recovered/Resolved with Sequelae]
  - Flatulence [Recovered/Resolved with Sequelae]
